FAERS Safety Report 8806010 (Version 1)
Quarter: 2012Q4

REPORT INFORMATION
  Report Type: 
  Country: US (occurrence: US)
  Receive Date: 20120925
  Receipt Date: 20120925
  Transmission Date: 20130627
  Serious: No
  Sender: FDA-Public Use
  Company Number: US-009507513-1208USA004837

PATIENT
  Age: 54 None
  Sex: Female
  Weight: 87.53 kg

DRUGS (2)
  1. PEG-INTRON [Suspect]
     Indication: HEPATITIS C
     Dosage: Redipen
     Dates: start: 20120806
  2. REBETOL [Suspect]
     Indication: HEPATITIS C
     Dosage: UNK
     Dates: start: 20120806

REACTIONS (10)
  - Injection site pain [Unknown]
  - Appetite disorder [Unknown]
  - Pain [Unknown]
  - Weight decreased [Unknown]
  - Paraesthesia [Unknown]
  - Paraesthesia [Unknown]
  - Headache [Unknown]
  - Headache [Unknown]
  - Chills [Unknown]
  - Drug dose omission [Unknown]
